FAERS Safety Report 5328056-2 (Version None)
Quarter: 2007Q2

REPORT INFORMATION
  Report Type: 
  Country: None (occurrence: None)
  Receive Date: 20070514
  Receipt Date: 20070426
  Transmission Date: 20071010
  Serious: Yes (Death, Congenital Anomaly, Other)
  Sender: FDA-Public Use
  Company Number: 2007US001011

PATIENT
  Age: 1 Day

DRUGS (9)
  1. PROGRAF [Suspect]
     Indication: DRUG EXPOSURE DURING PREGNANCY
  2. MYCOPHENOLATE MOFETIL [Suspect]
     Indication: DRUG EXPOSURE DURING PREGNANCY
     Dosage: SEE IMAGE
  3. AMLODIPINE [Concomitant]
  4. PRENATAL VITAMINS (ASCORBIC ACID, TOCOPHEROL, NICOTINIC ACID, MINERALS [Concomitant]
  5. METOPROLOL TARTRATE [Concomitant]
  6. FUROSEMIDE [Concomitant]
  7. ERYTHROPOIETIN (ERYTHROPOIETIN) [Concomitant]
  8. ASPIRIN [Concomitant]
  9. ACYCLOVIR [Concomitant]

REACTIONS (7)
  - CLEFT LIP AND PALATE [None]
  - CONGENITAL DIAPHRAGMATIC HERNIA [None]
  - DRUG EXPOSURE DURING PREGNANCY [None]
  - HEART DISEASE CONGENITAL [None]
  - MICROTIA [None]
  - PREMATURE BABY [None]
  - SMALL FOR DATES BABY [None]
